FAERS Safety Report 16415561 (Version 2)
Quarter: 2019Q3

REPORT INFORMATION
  Report Type: Spontaneous
  Country: US (occurrence: US)
  Receive Date: 20190611
  Receipt Date: 20190729
  Transmission Date: 20191004
  Serious: No
  Sender: FDA-Public Use
  Company Number: US-SA-2019SA154728

PATIENT
  Age: 65 Year
  Sex: Female

DRUGS (2)
  1. TOUJEO [Suspect]
     Active Substance: INSULIN GLARGINE
     Indication: TYPE 2 DIABETES MELLITUS
     Dosage: 52 U, BID
     Route: 058
  2. TOUJEO [Suspect]
     Active Substance: INSULIN GLARGINE
     Dosage: 54 U, BID
     Route: 058

REACTIONS (4)
  - Product dose omission [Unknown]
  - Off label use [Unknown]
  - Device operational issue [Unknown]
  - Product storage error [Unknown]

NARRATIVE: CASE EVENT DATE: 20190603
